FAERS Safety Report 5917313-4 (Version None)
Quarter: 2008Q4

REPORT INFORMATION
  Report Type: 
  Country: None (occurrence: None)
  Receive Date: 20081014
  Receipt Date: 20081001
  Transmission Date: 20090506
  Serious: Yes (Hospitalization)
  Sender: FDA-Public Use
  Company Number: KR-ELI_LILLY_AND_COMPANY-KR200805003793

PATIENT
  Sex: Female
  Weight: 53.3 kg

DRUGS (4)
  1. PEMETREXED [Suspect]
     Indication: NON-SMALL CELL LUNG CANCER
     Dosage: 500 MG/M2, UNK
     Route: 042
     Dates: start: 20071202, end: 20071202
  2. FOLIC ACID [Concomitant]
     Indication: SUPPLEMENTATION THERAPY
     Dosage: 1 MG, DAILY (1/D)
     Route: 048
     Dates: start: 20071125, end: 20071209
  3. VITAMIN B-12 [Concomitant]
     Indication: SUPPLEMENTATION THERAPY
     Dosage: 1000 MG, DAILY (1/D)
     Route: 058
     Dates: start: 20071125, end: 20071125
  4. DEXAMETHASONE [Concomitant]
     Indication: SUPPLEMENTATION THERAPY
     Dosage: 4 MG, 2/D
     Route: 048
     Dates: start: 20071201, end: 20071203

REACTIONS (1)
  - GLOMERULONEPHRITIS ACUTE [None]
